FAERS Safety Report 4732405-3 (Version None)
Quarter: 2005Q3

REPORT INFORMATION
  Report Type: 
  Country: None (occurrence: None)
  Receive Date: 20050801
  Receipt Date: 20050722
  Transmission Date: 20060218
  Serious: Yes (Life-Threatening, Hospitalization, Other)
  Sender: FDA-Public Use
  Company Number: KII-2005-0017651

PATIENT
  Age: 22 Year
  Sex: Male

DRUGS (5)
  1. OXYCONTIN [Suspect]
     Indication: DRUG USE FOR UNKNOWN INDICATION
  2. COCAINE (COCAINE) [Suspect]
     Indication: DRUG USE FOR UNKNOWN INDICATION
  3. ETHANOL (ETHANOL) [Suspect]
     Indication: DRUG USE FOR UNKNOWN INDICATION
  4. MARIJUNA (CANNABIS) [Suspect]
     Indication: DRUG USE FOR UNKNOWN INDICATION
  5. ACETAMINOPHEN [Suspect]
     Indication: DRUG USE FOR UNKNOWN INDICATION

REACTIONS (19)
  - AREFLEXIA [None]
  - BLOOD GLUCOSE DECREASED [None]
  - BODY TEMPERATURE DECREASED [None]
  - BRADYCARDIA [None]
  - CARDIAC ARREST [None]
  - COMA [None]
  - DEPRESSED LEVEL OF CONSCIOUSNESS [None]
  - HAEMATEMESIS [None]
  - HAEMODIALYSIS [None]
  - HEPATIC FAILURE [None]
  - HYPOTENSION [None]
  - HYPOTONIA [None]
  - HYPOXIA [None]
  - MYDRIASIS [None]
  - POLYSUBSTANCE ABUSE [None]
  - PUPIL FIXED [None]
  - RENAL FAILURE [None]
  - TACHYCARDIA [None]
  - URINE OUTPUT DECREASED [None]
